FAERS Safety Report 10980998 (Version 2)
Quarter: 2015Q2

REPORT INFORMATION
  Report Type: Spontaneous
  Country: US (occurrence: US)
  Receive Date: 20150402
  Receipt Date: 20150525
  Transmission Date: 20150821
  Serious: No
  Sender: FDA-Public Use
  Company Number: US-JNJFOC-20140825874

PATIENT
  Age: 51 Year
  Sex: Female
  Weight: 73.94 kg

DRUGS (3)
  1. IMODIUM MULTI-SYMPTOM RELIEF [Suspect]
     Active Substance: DIMETHICONE\LOPERAMIDE HYDROCHLORIDE
     Indication: DIARRHOEA
     Route: 048
  2. IMODIUM MULTI-SYMPTOM RELIEF [Suspect]
     Active Substance: DIMETHICONE\LOPERAMIDE HYDROCHLORIDE
     Route: 048
  3. GLUCOSAMINE [Concomitant]
     Active Substance: GLUCOSAMINE
     Indication: ARTHROPATHY
     Route: 065

REACTIONS (8)
  - Product quality issue [Unknown]
  - Throat irritation [Not Recovered/Not Resolved]
  - Product taste abnormal [Unknown]
  - Product size issue [Unknown]
  - Product difficult to swallow [Recovering/Resolving]
  - Product quality issue [Unknown]
  - Expired product administered [Unknown]
  - Retching [Unknown]

NARRATIVE: CASE EVENT DATE: 20140826
